FAERS Safety Report 9064063 (Version 1)
Quarter: 2013Q1

REPORT INFORMATION
  Report Type: Report from Study
  Country: US (occurrence: US)
  Receive Date: 20130130
  Receipt Date: 20130130
  Transmission Date: 20140127
  Serious: Yes (Hospitalization)
  Sender: FDA-Public Use
  Company Number: US-ABBOTT-12P-163-0920958-00

PATIENT
  Age: 21 Year
  Sex: Female

DRUGS (2)
  1. HUMIRA 40 MG/0.8 ML PEN [Suspect]
     Indication: CROHN^S DISEASE
     Dates: start: 201104
  2. HUMIRA 40 MG/0.8 ML PEN [Suspect]

REACTIONS (7)
  - Crohn^s disease [Unknown]
  - Clostridium difficile infection [Unknown]
  - Device malfunction [Unknown]
  - Incorrect dose administered [Unknown]
  - Malaise [Unknown]
  - Gastrointestinal bacterial infection [Unknown]
  - Endoscopy abnormal [Unknown]
